FAERS Safety Report 7374619-2 (Version None)
Quarter: 2011Q1

REPORT INFORMATION
  Report Type: 
  Country: None (occurrence: None)
  Receive Date: 20110309
  Receipt Date: 20110302
  Transmission Date: 20110831
  Serious: Yes (Other)
  Sender: FDA-Public Use
  Company Number: JHP201100045

PATIENT
  Age: 40 Year
  Sex: Male

DRUGS (1)
  1. APLISOL [Suspect]
     Indication: TUBERCULIN TEST
     Dosage: 0.1 ML, SINGLE, INTRADERMAL
     Route: 023
     Dates: start: 20110218, end: 20110218

REACTIONS (5)
  - LYMPHADENITIS [None]
  - INJECTION SITE HAEMATOMA [None]
  - PRODUCT CONTAMINATION MICROBIAL [None]
  - EXPOSURE TO CONTAMINATED DEVICE [None]
  - SKIN BACTERIAL INFECTION [None]
